FAERS Safety Report 9536728 (Version 2)
Quarter: 2014Q2

REPORT INFORMATION
  Report Type: Spontaneous
  Country: US (occurrence: US)
  Receive Date: 20130919
  Receipt Date: 20140611
  Transmission Date: 20141212
  Serious: Yes (Other)
  Sender: FDA-Public Use
  Company Number: US-PFIZER INC-2013266754

PATIENT
  Age: 43 Year
  Sex: Female

DRUGS (3)
  1. LIPITOR [Suspect]
     Indication: LOW DENSITY LIPOPROTEIN INCREASED
     Dosage: UNK
     Route: 048
  2. LIPITOR [Suspect]
     Indication: CARDIOVASCULAR EVENT PROPHYLAXIS
  3. ATORVASTATIN CALCIUM [Suspect]
     Dosage: 40 MG, 1X/DAY

REACTIONS (6)
  - Type 2 diabetes mellitus [Unknown]
  - Atrial fibrillation [Unknown]
  - Weight increased [Unknown]
  - Vision blurred [Unknown]
  - Hyperhidrosis [Unknown]
  - Dyspnoea [Unknown]
